FAERS Safety Report 7575550-X (Version None)
Quarter: 2011Q2

REPORT INFORMATION
  Report Type: 
  Country: None (occurrence: None)
  Receive Date: 20110627
  Receipt Date: 20110620
  Transmission Date: 20111010
  Serious: Yes (Life-Threatening, Hospitalization, Other)
  Sender: FDA-Public Use
  Company Number: GB-MERCK-1005GBR00094

PATIENT
  Age: 59 Year
  Sex: Male

DRUGS (19)
  1. EPOETIN [Concomitant]
     Route: 065
  2. ALLOPURINOL [Concomitant]
     Route: 065
  3. GENTAMICIN [Concomitant]
     Route: 065
  4. ASCORBIC ACID AND VITAMIN B (UNSPECIFIED) [Concomitant]
     Route: 065
  5. DIPYRIDAMOLE [Concomitant]
     Route: 065
  6. FLOXACILLIN [Concomitant]
     Indication: ARTHRITIS BACTERIAL
     Route: 065
  7. LANSOPRAZOLE [Concomitant]
     Route: 065
  8. FUSIDIC ACID [Suspect]
     Indication: ARTHRITIS BACTERIAL
     Route: 065
  9. FOLIC ACID [Concomitant]
     Route: 065
  10. CLARITHROMYCIN [Concomitant]
     Route: 065
  11. CALCIUM CARBONATE [Concomitant]
     Route: 065
  12. CEFTRIAXONE SODIUM [Concomitant]
     Route: 065
  13. CLOPIDOGREL BISULFATE [Concomitant]
     Route: 065
  14. ZOCOR [Suspect]
     Route: 048
  15. ALFACALCIDOL [Concomitant]
     Route: 065
  16. GLICLAZIDE [Concomitant]
     Indication: DIABETES MELLITUS
     Route: 065
  17. ATENOLOL [Concomitant]
     Route: 065
  18. FLOXACILLIN [Concomitant]
     Indication: OSTEOMYELITIS
     Route: 065
  19. IRON SUCROSE [Concomitant]
     Route: 065

REACTIONS (3)
  - RHABDOMYOLYSIS [None]
  - PARAPARESIS [None]
  - DRUG INTERACTION [None]
